FAERS Safety Report 11331529 (Version 2)
Quarter: 2017Q2

REPORT INFORMATION
  Report Type: Spontaneous
  Country: US (occurrence: US)
  Receive Date: 20150803
  Receipt Date: 20170404
  Transmission Date: 20170829
  Serious: No
  Sender: FDA-Public Use
  Company Number: US-ELI_LILLY_AND_COMPANY-US201507008258

PATIENT
  Sex: Male

DRUGS (2)
  1. AXIRON [Suspect]
     Active Substance: TESTOSTERONE
     Indication: BLOOD TESTOSTERONE DECREASED
     Dosage: 60 MG, UNKNOWN
     Route: 065
     Dates: start: 2015
  2. AXIRON [Suspect]
     Active Substance: TESTOSTERONE
     Dosage: 90 MG, QD
     Route: 065

REACTIONS (7)
  - Asthenia [Recovered/Resolved]
  - Intentional product misuse [Not Recovered/Not Resolved]
  - Depression [Recovering/Resolving]
  - Drug ineffective [Unknown]
  - Irritability [Recovered/Resolved]
  - Fatigue [Recovered/Resolved]
  - Libido decreased [Recovered/Resolved]

NARRATIVE: CASE EVENT DATE: 2015
